FAERS Safety Report 6259648-4 (Version None)
Quarter: 2009Q3

REPORT INFORMATION
  Report Type: 
  Country: None (occurrence: None)
  Receive Date: 20090706
  Receipt Date: 20090706
  Transmission Date: 20100115
  Serious: Yes (Other)
  Sender: FDA-Public Use
  Company Number: None

PATIENT
  Age: 52 Year
  Sex: Female
  Weight: 53.978 kg

DRUGS (2)
  1. ACTONEL [Suspect]
     Indication: OSTEOPOROSIS
     Dosage: 35 MG 1 A WEEK PO
     Route: 048
  2. BONIVA [Suspect]
     Indication: OSTEOPOROSIS
     Dosage: 1 A MONTH PO
     Route: 048
     Dates: start: 20051201, end: 20061126

REACTIONS (5)
  - ACTIVITIES OF DAILY LIVING IMPAIRED [None]
  - DIARRHOEA [None]
  - DYSPEPSIA [None]
  - MYALGIA [None]
  - PALPITATIONS [None]
